FAERS Safety Report 9203595 (Version 1)
Quarter: 2013Q2

REPORT INFORMATION
  Report Type: Spontaneous
  Country: US (occurrence: US)
  Receive Date: 20130402
  Receipt Date: 20130402
  Transmission Date: 20140414
  Serious: No
  Sender: FDA-Public Use
  Company Number: US-PFIZER INC-2013100867

PATIENT
  Age: 68 Year
  Sex: Male
  Weight: 75.28 kg

DRUGS (6)
  1. SUTENT [Suspect]
     Dosage: 50 MG, DAILY
     Route: 048
  2. PROPECIA [Concomitant]
  3. LISINOPRIL [Concomitant]
  4. METOPROLOL [Concomitant]
  5. AMBIEN [Concomitant]
  6. PREDNISONE [Concomitant]

REACTIONS (2)
  - Fatigue [Unknown]
  - Nausea [Unknown]
